FAERS Safety Report 4848746-5 (Version None)
Quarter: 2005Q4

REPORT INFORMATION
  Report Type: 
  Country: None (occurrence: None)
  Receive Date: 20051206
  Receipt Date: 20051011
  Transmission Date: 20060501
  Serious: Yes (Death)
  Sender: FDA-Public Use
  Company Number: MPS1-10214

PATIENT
  Age: 6 Year
  Sex: Male

DRUGS (4)
  1. ALDURAZYME [Suspect]
     Indication: MUCOPOLYSACCHARIDOSIS I
     Dosage: 1500 UNITS QWK IV
     Route: 042
     Dates: start: 20030320, end: 20040422
  2. SALBUTAMOL [Concomitant]
  3. CEFTAXIMA [Concomitant]
  4. URBASON [Concomitant]

REACTIONS (6)
  - ACUTE RESPIRATORY FAILURE [None]
  - BRADYCARDIA [None]
  - CARDIO-RESPIRATORY ARREST [None]
  - CARDIOPULMONARY FAILURE [None]
  - CYANOSIS [None]
  - GENERAL PHYSICAL HEALTH DETERIORATION [None]
